FAERS Safety Report 13105849 (Version 2)
Quarter: 2017Q2

REPORT INFORMATION
  Report Type: Spontaneous
  Country: FR (occurrence: FR)
  Receive Date: 20170111
  Receipt Date: 20170405
  Transmission Date: 20170830
  Serious: Yes (Other)
  Sender: FDA-Public Use
  Company Number: FR-009507513-1701FRA002634

PATIENT
  Age: 34 Year
  Sex: Male

DRUGS (3)
  1. TARGOCID [Suspect]
     Active Substance: TEICOPLANIN
     Indication: INFECTION
     Dosage: 600 MG, QD
     Route: 042
     Dates: start: 20161209, end: 20161220
  2. CANCIDAS [Suspect]
     Active Substance: CASPOFUNGIN ACETATE
     Indication: INFECTION
     Dosage: 70 MG, QD
     Route: 042
     Dates: start: 20161213, end: 20161219
  3. PIPERACILLIN AND TAZOBACTAM [Suspect]
     Active Substance: PIPERACILLIN SODIUM\TAZOBACTAM SODIUM
     Indication: INFECTION
     Dosage: STRENGTH: 4 G / 500 MG, 4 G EVERY 8 HOURS
     Route: 042
     Dates: start: 20161125, end: 20161221

REACTIONS (2)
  - Dermatitis exfoliative [Recovered/Resolved]
  - Rash maculo-papular [Recovered/Resolved]

NARRATIVE: CASE EVENT DATE: 20161219
